FAERS Safety Report 8119793-5 (Version None)
Quarter: 2012Q1

REPORT INFORMATION
  Report Type: 
  Country: None (occurrence: None)
  Receive Date: 20120206
  Receipt Date: 20120206
  Transmission Date: 20120608
  Serious: No
  Sender: FDA-Public Use
  Company Number: None

PATIENT
  Age: 64 Year
  Sex: Female
  Weight: 80.5 kg

DRUGS (1)
  1. ONGLYZA [Suspect]
     Indication: DIABETES MELLITUS
     Dosage: 5 MG ONCE DAILY PO
     Route: 048
     Dates: start: 20100301, end: 20111211

REACTIONS (6)
  - FATIGUE [None]
  - HYPOGLYCAEMIA [None]
  - DIZZINESS [None]
  - HUNGER [None]
  - TREATMENT NONCOMPLIANCE [None]
  - WEIGHT DECREASED [None]
